FAERS Safety Report 10311601 (Version 2)
Quarter: 2014Q4

REPORT INFORMATION
  Report Type: Spontaneous
  Country: CZ (occurrence: CZ)
  Receive Date: 20140717
  Receipt Date: 20141016
  Transmission Date: 20150528
  Serious: Yes (Other)
  Sender: FDA-Public Use
  Company Number: CZ-GLAXOSMITHKLINE-B1014623A

PATIENT
  Age: 14 Year
  Sex: Male

DRUGS (3)
  1. VINCENTKA [Concomitant]
     Indication: RHINITIS
  2. AVAMYS [Suspect]
     Active Substance: FLUTICASONE FUROATE
     Indication: RHINITIS ALLERGIC
     Dosage: 1 SPRAY EACH BOTH NOSTRILS
     Route: 045
     Dates: start: 200907, end: 20140616
  3. SEPTONEX [Concomitant]
     Indication: RHINITIS

REACTIONS (4)
  - Nasal discomfort [Unknown]
  - Nasal inflammation [Unknown]
  - Epistaxis [Unknown]
  - Nasal septum perforation [Unknown]

NARRATIVE: CASE EVENT DATE: 20140616
